FAERS Safety Report 5863035-8 (Version None)
Quarter: 2008Q3

REPORT INFORMATION
  Report Type: 
  Country: None (occurrence: None)
  Receive Date: 20080818
  Receipt Date: 20080502
  Transmission Date: 20090109
  Serious: No
  Sender: FDA-Public Use
  Company Number: WAES 0805USA00597

PATIENT
  Age: 68 Year
  Sex: Male
  Weight: 89.3586 kg

DRUGS (2)
  1. JANUVIA [Suspect]
     Indication: DIABETES MELLITUS
     Dosage: 100 MG/DAILY/PO
     Route: 048
     Dates: start: 20080213, end: 20080430
  2. THERAPY UNSPECIFIED [Concomitant]

REACTIONS (1)
  - RASH PRURITIC [None]
